FAERS Safety Report 5849541-0 (Version None)
Quarter: 2008Q3

REPORT INFORMATION
  Report Type: 
  Country: None (occurrence: None)
  Receive Date: 20080819
  Receipt Date: 20080814
  Transmission Date: 20090109
  Serious: Yes (Hospitalization)
  Sender: FDA-Public Use
  Company Number: B0533585A

PATIENT
  Age: 39 Year
  Sex: Male

DRUGS (2)
  1. EPIVIR [Suspect]
     Indication: HIV INFECTION
     Dosage: 300MG PER DAY
     Route: 048
     Dates: start: 20080407, end: 20080101
  2. FUZEON [Suspect]
     Indication: HIV INFECTION
     Dosage: 180MG PER DAY
     Route: 058
     Dates: start: 20080407, end: 20080101

REACTIONS (1)
  - PNEUMONIA [None]
